FAERS Safety Report 12795811 (Version 1)
Quarter: 2016Q3

REPORT INFORMATION
  Report Type: Report from Study
  Country: CA (occurrence: CA)
  Receive Date: 20160929
  Receipt Date: 20160929
  Transmission Date: 20161109
  Serious: Yes (Other)
  Sender: FDA-Public Use
  Company Number: CA-ABBVIE-16K-028-1739603-00

PATIENT
  Sex: Male

DRUGS (1)
  1. HUMIRA [Suspect]
     Active Substance: ADALIMUMAB
     Indication: ANKYLOSING SPONDYLITIS
     Route: 058
     Dates: start: 20151027, end: 201605

REACTIONS (4)
  - Gastrointestinal pain [Recovered/Resolved]
  - Blood iron decreased [Recovered/Resolved]
  - Intestinal haemorrhage [Recovered/Resolved]
  - Gastrointestinal mucosal disorder [Recovered/Resolved]
